FAERS Safety Report 24340171 (Version 1)
Quarter: 2024Q3

REPORT INFORMATION
  Report Type: Spontaneous
  Country: US (occurrence: US)
  Receive Date: 20240919
  Receipt Date: 20240919
  Transmission Date: 20241017
  Serious: Yes (Hospitalization, Other)
  Sender: PRAGMA PHARMACEUTICALS
  Company Number: US-PRAGMA-2024-US-049279

PATIENT
  Age: 40 Year
  Sex: Female

DRUGS (4)
  1. TRAZODONE [Suspect]
     Active Substance: TRAZODONE HYDROCHLORIDE
     Indication: Insomnia
     Dosage: UNKNOWN
  2. PAROXETINE [Suspect]
     Active Substance: PAROXETINE
     Indication: Anxiety
     Dosage: UNKNOWN
  3. LISDEXAMFETAMINE [Suspect]
     Active Substance: LISDEXAMFETAMINE
     Indication: Attention deficit hyperactivity disorder
     Dosage: UNKNOWN
  4. BUDESONIDE [Suspect]
     Active Substance: BUDESONIDE
     Indication: Colitis microscopic
     Dosage: UNKNOWN

REACTIONS (1)
  - Hepatic failure [Recovered/Resolved]
